FAERS Safety Report 24645074 (Version 1)
Quarter: 2024Q4

REPORT INFORMATION
  Report Type: Spontaneous
  Country: CN (occurrence: CN)
  Receive Date: 20241121
  Receipt Date: 20241121
  Transmission Date: 20250115
  Serious: Yes (Other)
  Sender: BEIGENE
  Company Number: CN-BEIGENE-BGN-2024-018389

PATIENT

DRUGS (4)
  1. TISLELIZUMAB [Suspect]
     Active Substance: TISLELIZUMAB
     Indication: Lung carcinoma cell type unspecified recurrent
     Dosage: 0.2 GRAM
     Route: 041
     Dates: start: 20241017
  2. CARBOPLATIN [Suspect]
     Active Substance: CARBOPLATIN
     Indication: Lung carcinoma cell type unspecified recurrent
     Dosage: 600 MILLIGRAM
     Route: 041
     Dates: start: 20241010
  3. XGEVA [Suspect]
     Active Substance: DENOSUMAB
     Indication: Lung carcinoma cell type unspecified recurrent
     Dosage: 120 MILLIGRAM
     Route: 058
     Dates: start: 20241010
  4. BEVACIZUMAB [Suspect]
     Active Substance: BEVACIZUMAB
     Indication: Lung carcinoma cell type unspecified recurrent
     Dosage: 500 MILLIGRAM
     Route: 041
     Dates: start: 20241010

REACTIONS (1)
  - Myelosuppression [Recovering/Resolving]

NARRATIVE: CASE EVENT DATE: 20241012
